FAERS Safety Report 10014432 (Version 1)
Quarter: 2014Q1

REPORT INFORMATION
  Report Type: Spontaneous
  Country: CA (occurrence: CA)
  Receive Date: 20140317
  Receipt Date: 20140317
  Transmission Date: 20141002
  Serious: Yes (Hospitalization, Other)
  Sender: FDA-Public Use
  Company Number: CA-009507513-1403CAN006934

PATIENT
  Age: 64 Year
  Sex: Female
  Weight: 69 kg

DRUGS (34)
  1. NASONEX [Suspect]
     Route: 045
  2. ALENDRONATE SODIUM [Suspect]
     Route: 048
  3. FUROSEMIDE [Suspect]
     Route: 048
  4. PREDNISONE [Suspect]
     Route: 048
  5. WARFARIN SODIUM [Suspect]
     Route: 048
  6. LORATADINE [Suspect]
     Route: 048
  7. ACIDOPHILUS [Suspect]
     Route: 065
  8. APO K [Suspect]
     Dosage: 600 MG, UNK
     Route: 048
  9. APO-SULFATRIM [Suspect]
     Route: 065
  10. ATIVAN [Suspect]
     Route: 065
  11. VITAMIN B COMPLEX [Suspect]
     Route: 048
  12. BACLOFEN [Suspect]
     Route: 065
  13. CALCIUM (UNSPECIFIED) [Suspect]
     Route: 065
  14. CELLCEPT [Suspect]
     Route: 065
  15. CYMBALTA [Suspect]
     Dosage: 1 DF, QD(FOR 3 DAYS)
     Route: 048
  16. DOCUSATE SODIUM [Suspect]
     Route: 065
  17. ELECTROLYTES (UNSPECIFIED) [Suspect]
     Route: 065
  18. OMEGA-3 MARINE TRIGLYCERIDES [Suspect]
     Route: 065
  19. HYDROMORPHONE [Suspect]
     Route: 065
  20. GLOBULIN, IMMUNE [Suspect]
     Route: 042
  21. IMODIUM [Suspect]
     Route: 065
  22. LYRICA [Suspect]
     Route: 048
  23. MELATONIN [Suspect]
     Route: 065
  24. VITAMINS (UNSPECIFIED) [Suspect]
     Route: 065
  25. NORTRIPTYLINE [Suspect]
     Route: 048
  26. NOVO-HYDRAZIDE [Suspect]
     Route: 048
  27. SENNOSIDES [Suspect]
     Route: 065
  28. SENOKOT (SENNA) [Suspect]
     Route: 065
  29. TIZANIDINE HYDROCHLORIDE [Suspect]
     Route: 048
  30. CYANOCOBALAMIN [Suspect]
     Route: 065
  31. ASCORBIC ACID [Suspect]
     Route: 065
  32. VITAMIN D (UNSPECIFIED) [Suspect]
     Route: 065
  33. ZANTAC [Suspect]
     Route: 065
  34. ZOPICLONE [Suspect]
     Route: 048

REACTIONS (4)
  - Coma [Recovered/Resolved]
  - Gastrooesophageal reflux disease [Recovered/Resolved]
  - Pneumonia aspiration [Recovered/Resolved]
  - Somnolence [Recovered/Resolved]
